FAERS Safety Report 26177946 (Version 1)
Quarter: 2025Q4

REPORT INFORMATION
  Report Type: Report from Study
  Country: ZA (occurrence: ZA)
  Receive Date: 20251219
  Receipt Date: 20251219
  Transmission Date: 20260117
  Serious: Yes (Other)
  Sender: ROCHE
  Company Number: ZA-ROCHE-10000230540

PATIENT
  Age: 61 Year
  Sex: Female

DRUGS (3)
  1. VABYSMO [Suspect]
     Active Substance: FARICIMAB-SVOA
     Indication: Neovascular age-related macular degeneration
  2. VABYSMO [Suspect]
     Active Substance: FARICIMAB-SVOA
     Dosage: 1 INJECTION EVERY UP TO EVERY 16 WEEKS
     Dates: start: 20240904
  3. VABYSMO [Suspect]
     Active Substance: FARICIMAB-SVOA
     Dates: start: 20241002

REACTIONS (3)
  - Optical coherence tomography abnormal [Not Recovered/Not Resolved]
  - Visual acuity reduced [Not Recovered/Not Resolved]
  - Retinal thickening [Unknown]

NARRATIVE: CASE EVENT DATE: 20250311
